FAERS Safety Report 20321213 (Version 2)
Quarter: 2024Q1

REPORT INFORMATION
  Report Type: Other
  Country: US (occurrence: None)
  Receive Date: 20220111
  Receipt Date: 20240301
  Transmission Date: 20240410
  Serious: Yes (Hospitalization)
  Sender: FDA-Public Use
  Company Number: US-ROCHE-2995246

PATIENT
  Age: 47 Year
  Sex: Female

DRUGS (1)
  1. OCREVUS [Suspect]
     Active Substance: OCRELIZUMAB
     Indication: Multiple sclerosis
     Dosage: 300MG DAY 1 AND DAY 15 LATER 600MG EVERY 6 MONTHS?DATE OF MOST RECENT INFUSION 14/JUL/2021
     Route: 042
     Dates: start: 20210702

REACTIONS (1)
  - Pneumonia [Recovered/Resolved]
